FAERS Safety Report 9200959 (Version 2)
Quarter: 2013Q2

REPORT INFORMATION
  Report Type: Spontaneous
  Country: AT (occurrence: AT)
  Receive Date: 20130401
  Receipt Date: 20130417
  Transmission Date: 20140414
  Serious: Yes (Hospitalization, Other)
  Sender: FDA-Public Use
  Company Number: AT-JNJFOC-20130212756

PATIENT
  Age: 26 Year
  Sex: Female

DRUGS (6)
  1. XEPLION [Suspect]
     Indication: SCHIZOAFFECTIVE DISORDER
     Route: 030
  2. XEPLION [Suspect]
     Indication: SCHIZOAFFECTIVE DISORDER
     Route: 030
     Dates: start: 20121228, end: 20121228
  3. XEPLION [Suspect]
     Indication: SCHIZOAFFECTIVE DISORDER
     Route: 030
     Dates: start: 20121129, end: 20121129
  4. XEPLION [Suspect]
     Indication: SCHIZOAFFECTIVE DISORDER
     Route: 030
     Dates: start: 20121031, end: 20121031
  5. SERTRALINE [Concomitant]
     Route: 065
  6. TRUXAL [Concomitant]
     Dosage: AS NEEDED
     Route: 065

REACTIONS (4)
  - Blood prolactin increased [Not Recovered/Not Resolved]
  - Schizoaffective disorder [Unknown]
  - Menstruation irregular [Unknown]
  - Incorrect dose administered [Unknown]
